FAERS Safety Report 11768608 (Version 1)
Quarter: 2015Q4

REPORT INFORMATION
  Report Type: Report from Study
  Country: US (occurrence: US)
  Receive Date: 20151123
  Receipt Date: 20151123
  Transmission Date: 20160304
  Serious: Yes (Hospitalization)
  Sender: FDA-Public Use
  Company Number: US-BIOGENIDEC-2015BI140573

PATIENT
  Age: 20 Year
  Sex: Female

DRUGS (1)
  1. TYSABRI [Suspect]
     Active Substance: NATALIZUMAB
     Indication: MULTIPLE SCLEROSIS
     Route: 042
     Dates: start: 20150929, end: 20151015

REACTIONS (5)
  - Rash [Not Recovered/Not Resolved]
  - Nausea [Not Recovered/Not Resolved]
  - Anaphylactic reaction [Recovered/Resolved]
  - Back pain [Not Recovered/Not Resolved]
  - General symptom [Recovered/Resolved]

NARRATIVE: CASE EVENT DATE: 20150929
